FAERS Safety Report 20101544 (Version 1)
Quarter: 2021Q4

REPORT INFORMATION
  Report Type: Spontaneous
  Country: US (occurrence: US)
  Receive Date: 20211123
  Receipt Date: 20211123
  Transmission Date: 20220303
  Serious: No
  Sender: FDA-Public Use
  Company Number: US-CELGENE-USA-20211105806

PATIENT
  Sex: Male

DRUGS (1)
  1. ZEPOSIA [Suspect]
     Active Substance: OZANIMOD HYDROCHLORIDE
     Indication: Colitis
     Dosage: .92 MILLIGRAM
     Route: 048
     Dates: start: 202107

REACTIONS (2)
  - Liver function test increased [Unknown]
  - Infection [Unknown]

NARRATIVE: CASE EVENT DATE: 20210101
